FAERS Safety Report 9630748 (Version 2)
Quarter: 2013Q4

REPORT INFORMATION
  Report Type: Spontaneous
  Country: US (occurrence: None)
  Receive Date: 20131015
  Receipt Date: 20131113
  Transmission Date: 20140711
  Serious: Yes (Other)
  Sender: FDA-Public Use
  Company Number: 2013P1019957

PATIENT
  Age: 18 Year
  Sex: Male

DRUGS (2)
  1. MYORISAN 40 MG [Suspect]
     Indication: ACNE
     Route: 048
     Dates: start: 20130826, end: 20130912
  2. MIRLALAX [Concomitant]

REACTIONS (4)
  - Crohn^s disease [None]
  - Small intestine ulcer [None]
  - Rectal haemorrhage [None]
  - Constipation [None]
